FAERS Safety Report 11308672 (Version 2)
Quarter: 2015Q3

REPORT INFORMATION
  Report Type: Report from Study
  Country: US (occurrence: US)
  Receive Date: 20150724
  Receipt Date: 20150810
  Transmission Date: 20151125
  Serious: Yes (Death, Life-Threatening, Hospitalization, Other)
  Sender: FDA-Public Use
  Company Number: US-ROCHE-1608947

PATIENT
  Age: 80 Year
  Sex: Female

DRUGS (22)
  1. INSULIN HUMAN LISPRO [Concomitant]
     Dosage: 1 ACCUCHECK SUB-Q
     Route: 065
     Dates: start: 20150708
  2. DIGOXIN. [Concomitant]
     Active Substance: DIGOXIN
     Indication: ATRIAL FIBRILLATION
     Route: 048
     Dates: start: 20150708
  3. VITAMIN D3 [Concomitant]
     Active Substance: CHOLECALCIFEROL
     Dosage: 1000 UNIT
     Route: 048
  4. ZESTRIL [Concomitant]
     Active Substance: LISINOPRIL
     Route: 048
  5. CEFTRIAXONE. [Concomitant]
     Active Substance: CEFTRIAXONE
     Dosage: 50 MLS IVPB DAILY SCH
     Route: 065
     Dates: start: 20150708
  6. ATORVASTATIN [Concomitant]
     Active Substance: ATORVASTATIN
     Indication: BLOOD CHOLESTEROL INCREASED
     Route: 048
     Dates: start: 20150708
  7. BENZONATATE. [Concomitant]
     Active Substance: BENZONATATE
     Route: 065
     Dates: start: 20150707
  8. LIDODERM [Concomitant]
     Active Substance: LIDOCAINE
     Dosage: 1 PATCH SCH DAILY
     Route: 061
     Dates: start: 20150708
  9. LANTUS [Concomitant]
     Active Substance: INSULIN GLARGINE
     Dosage: 20 UNIT SUB-QTID. AC ML
     Route: 065
     Dates: start: 20150707
  10. XARELTO [Concomitant]
     Active Substance: RIVAROXABAN
     Route: 048
     Dates: start: 20150708
  11. LIPITOR [Concomitant]
     Active Substance: ATORVASTATIN CALCIUM
     Indication: BLOOD CHOLESTEROL INCREASED
     Route: 048
     Dates: start: 20150708
  12. RAYOS [Concomitant]
     Active Substance: PREDNISONE
     Route: 048
  13. TYLENOL [Concomitant]
     Active Substance: ACETAMINOPHEN
     Dosage: Q6H PRN
     Route: 048
  14. ASPIRIN ENTERIC COATED [Concomitant]
     Active Substance: ASPIRIN
     Dosage: DAILY
     Route: 048
     Dates: start: 20150708
  15. HUMALOG [Concomitant]
     Active Substance: INSULIN LISPRO
     Dosage: 8 UNIT SUB-Q TID.AC ML
     Route: 065
     Dates: start: 20150708
  16. IMDUR [Concomitant]
     Active Substance: ISOSORBIDE MONONITRATE
     Route: 048
     Dates: start: 20150708
  17. BUDESONIDE. [Concomitant]
     Active Substance: BUDESONIDE
     Route: 065
     Dates: start: 20150707
  18. VIBRAMYCIN [Concomitant]
     Active Substance: DOXYCYCLINE
     Dosage: BID SCH
     Route: 048
  19. ESBRIET [Suspect]
     Active Substance: PIRFENIDONE
     Indication: PULMONARY FIBROSIS
     Route: 048
     Dates: start: 201411, end: 20150707
  20. ALTACE [Concomitant]
     Active Substance: RAMIPRIL
     Route: 048
  21. ZOLOFT [Concomitant]
     Active Substance: SERTRALINE HYDROCHLORIDE
     Route: 048
     Dates: start: 20150708
  22. PERCOCET [Concomitant]
     Active Substance: ACETAMINOPHEN\OXYCODONE HYDROCHLORIDE
     Dosage: 5/325 PO Q 4-6 PRN
     Route: 065

REACTIONS (5)
  - Infection [Unknown]
  - Pneumonia [Fatal]
  - Asthma [Recovered/Resolved]
  - Dyspnoea [Recovered/Resolved]
  - Respiratory failure [Not Recovered/Not Resolved]

NARRATIVE: CASE EVENT DATE: 20150528
